FAERS Safety Report 8362697-3 (Version None)
Quarter: 2012Q1

REPORT INFORMATION
  Report Type: 
  Country: None (occurrence: None)
  Receive Date: 20120323
  Receipt Date: 20111123
  Transmission Date: 20120608
  Serious: Yes (Other)
  Sender: FDA-Public Use
  Company Number: 163-21880-11113381

PATIENT
  Age: 63 Year
  Sex: Female

DRUGS (7)
  1. FLUVIRIN (INFLUENZA VIRUS VACCINE POLYVALENT) [Concomitant]
  2. ATENOLOL [Concomitant]
  3. REVLIMID [Suspect]
     Indication: MYELOFIBROSIS
     Dosage: 5 MG, 1 IN 1 D, PO
     Route: 048
     Dates: start: 20110901
  4. ACYCLOVIR [Concomitant]
  5. ZOLPIDEM [Concomitant]
  6. PAROXETINE (PAROXEITNE) [Concomitant]
  7. AMBIEN [Concomitant]

REACTIONS (1)
  - HAEMOGLOBIN DECREASED [None]
